FAERS Safety Report 4470338-0 (Version None)
Quarter: 2004Q3

REPORT INFORMATION
  Report Type: 
  Country: None (occurrence: None)
  Receive Date: 20040910
  Receipt Date: 20040607
  Transmission Date: 20050211
  Serious: No
  Sender: FDA-Public Use
  Company Number: 2004-00044

PATIENT
  Age: 82 Year
  Sex: Female

DRUGS (2)
  1. VELCADE [Suspect]
     Indication: MULTIPLE MYELOMA
     Dosage: 2.25 MG, 2/WEEK
     Dates: start: 20040301
  2. VELCADE [Suspect]
     Dosage: 1.75 MG, 1/WEEK

REACTIONS (2)
  - NEUROPATHY [None]
  - SYNCOPE [None]
